FAERS Safety Report 8287610-9 (Version None)
Quarter: 2012Q2

REPORT INFORMATION
  Report Type: 
  Country: None (occurrence: None)
  Receive Date: 20120416
  Receipt Date: 20120410
  Transmission Date: 20120825
  Serious: Yes (Other)
  Sender: FDA-Public Use
  Company Number: PHHY2012BR022750

PATIENT
  Sex: Female

DRUGS (6)
  1. ALENIA [Concomitant]
     Indication: DYSPNOEA
  2. MANIFIX [Concomitant]
     Indication: LUNG DISORDER
  3. FORMOTEROL FUMARATE [Suspect]
     Dosage: 2 CAPSULES OF EACH TREATMENT TID
  4. FORMOTEROL FUMARATE [Suspect]
     Indication: DYSPNOEA
     Dosage: CAPSULE OF EACH TREATMENT BID
  5. SINGULAIR [Concomitant]
     Indication: LUNG DISORDER
  6. ANTIALLERGIC AGENTS, EXCL CORTICOSTEROIDS [Concomitant]
     Indication: LUNG DISORDER

REACTIONS (4)
  - ASTHMA [None]
  - DYSPNOEA [None]
  - COUGH [None]
  - BREATH SOUNDS ABNORMAL [None]
